FAERS Safety Report 12639489 (Version 1)
Quarter: 2016Q3

REPORT INFORMATION
  Report Type: Spontaneous
  Country: None (occurrence: None)
  Receive Date: 20160809
  Receipt Date: 20160809
  Transmission Date: 20161109
  Serious: Yes (Life-Threatening, Other)
  Sender: FDA-Public Use
  Company Number: None

PATIENT
  Age: 29 Year
  Sex: Male
  Weight: 68.49 kg

DRUGS (3)
  1. BUPRENORPHINE/NALOXONE [Suspect]
     Active Substance: BUPRENORPHINE\NALOXONE
     Indication: DRUG DEPENDENCE
     Dosage: 60 TABLET (S) TWICE A DAY GVEN INTO/UNDER THE SKIN
     Dates: start: 20160731, end: 20160802
  2. TYLENOL [Concomitant]
     Active Substance: ACETAMINOPHEN
  3. ASPIRIN. [Concomitant]
     Active Substance: ASPIRIN

REACTIONS (4)
  - Dyspnoea [None]
  - Urticaria [None]
  - Abdominal pain upper [None]
  - Prescription drug used without a prescription [None]

NARRATIVE: CASE EVENT DATE: 20160731
